FAERS Safety Report 26072182 (Version 1)
Quarter: 2025Q4

REPORT INFORMATION
  Report Type: Spontaneous
  Country: US (occurrence: US)
  Receive Date: 20251120
  Receipt Date: 20251120
  Transmission Date: 20260118
  Serious: Yes (Other)
  Sender: PFIZER
  Company Number: US-PFIZER INC-202500225274

PATIENT
  Age: 59 Year
  Sex: Female

DRUGS (2)
  1. DOBUTAMINE HYDROCHLORIDE [Suspect]
     Active Substance: DOBUTAMINE HYDROCHLORIDE
     Indication: Cardiac pharmacologic stress test
     Dosage: UNK
     Dates: start: 20230404
  2. DEFINITY [Concomitant]
     Active Substance: PERFLUTREN
     Dosage: UNK
     Dates: start: 20230404, end: 20230404

REACTIONS (5)
  - Oxygen saturation decreased [Recovered/Resolved]
  - Heart rate increased [Recovered/Resolved]
  - Dyspnoea [Recovered/Resolved]
  - Drug ineffective for unapproved indication [Unknown]
  - Off label use [Unknown]

NARRATIVE: CASE EVENT DATE: 20230404
